FAERS Safety Report 13967951 (Version 1)
Quarter: 2017Q3

REPORT INFORMATION
  Report Type: Spontaneous
  Country: US (occurrence: US)
  Receive Date: 20170914
  Receipt Date: 20170914
  Transmission Date: 20171128
  Serious: Yes (Other)
  Sender: FDA-Public Use
  Company Number: US-TEVA-805301USA

PATIENT
  Sex: Female

DRUGS (1)
  1. TRAZODONE [Suspect]
     Active Substance: TRAZODONE HYDROCHLORIDE
     Indication: SLEEP DISORDER
     Route: 065
     Dates: start: 2017, end: 2017

REACTIONS (7)
  - Product use in unapproved indication [Unknown]
  - Limb discomfort [Unknown]
  - Chest pain [Unknown]
  - Arterial occlusive disease [Unknown]
  - Myocardial infarction [Unknown]
  - Cardiac disorder [Unknown]
  - Back pain [Unknown]

NARRATIVE: CASE EVENT DATE: 2017
